FAERS Safety Report 6578133-3 (Version None)
Quarter: 2010Q1

REPORT INFORMATION
  Report Type: 
  Country: None (occurrence: None)
  Receive Date: 20100211
  Receipt Date: 20100203
  Transmission Date: 20100710
  Serious: Yes (Other)
  Sender: FDA-Public Use
  Company Number: US-PFIZER INC-2010014760

PATIENT
  Sex: Female
  Weight: 68.027 kg

DRUGS (7)
  1. CHANTIX [Suspect]
     Indication: SMOKING CESSATION THERAPY
  2. NORVASC [Suspect]
     Indication: MIGRAINE
     Dosage: 25 MG, 1X/DAY
  3. TOPAMAX [Concomitant]
     Indication: EPILEPSY
     Dosage: 25 MG, 2X/DAY
  4. LAMICTAL [Concomitant]
     Indication: EPILEPSY
     Dosage: 100 MG, 2X/DAY
     Dates: end: 20090101
  5. KEPPRA [Concomitant]
     Indication: EPILEPSY
     Dosage: 2000 MG, 2X/DAY
  6. ALBUTEROL [Concomitant]
     Dosage: UNK
  7. CYMBALTA [Concomitant]
     Indication: DEPRESSION
     Dosage: UNK

REACTIONS (3)
  - GRAND MAL CONVULSION [None]
  - HYPERTENSION [None]
  - SUICIDE ATTEMPT [None]
